FAERS Safety Report 8348693 (Version 6)
Quarter: 2014Q2

REPORT INFORMATION
  Report Type: Report from Study
  Country: GB (occurrence: GB)
  Receive Date: 20120123
  Receipt Date: 20140620
  Transmission Date: 20141212
  Serious: Yes (Death, Other)
  Sender: FDA-Public Use
  Company Number: GB-ROCHE-1030622

PATIENT
  Age: 49 Year
  Sex: Male
  Weight: 109 kg

DRUGS (2)
  1. BEVACIZUMAB [Suspect]
     Indication: MALIGNANT MELANOMA
     Dosage: DATE OF LAST DOSE ADMINISTERED PRIOR TO EVENT WAS 06-JAN-2012, TOTAL 2 INFUSIONS RECEIVED PRIOR TO E
     Route: 042
     Dates: start: 20111216
  2. BEVACIZUMAB [Suspect]
     Route: 042
     Dates: start: 20120106, end: 20120106

REACTIONS (9)
  - Aortic dissection [Fatal]
  - Cardiac tamponade [Fatal]
  - Dyspnoea [Fatal]
  - Chest pain [Fatal]
  - Back pain [Fatal]
  - Pain [Fatal]
  - Pericardial haemorrhage [Fatal]
  - Aortic dissection [Not Recovered/Not Resolved]
  - Hypertension [Not Recovered/Not Resolved]
